FAERS Safety Report 8983299 (Version 3)
Quarter: 2013Q1

REPORT INFORMATION
  Report Type: Report from Study
  Country: DE (occurrence: DE)
  Receive Date: 20121221
  Receipt Date: 20130306
  Transmission Date: 20140127
  Serious: Yes (Hospitalization, Other)
  Sender: FDA-Public Use
  Company Number: DE-ABBOTT-12P-062-1024448-00

PATIENT
  Sex: Female
  Weight: 59 kg

DRUGS (4)
  1. HUMIRA [Suspect]
     Indication: RHEUMATOID ARTHRITIS
     Route: 050
     Dates: start: 20100507, end: 20121108
  2. METHOTREXATE [Concomitant]
     Indication: RHEUMATOID ARTHRITIS
     Dates: start: 200709
  3. LEFLUNOMID [Concomitant]
     Indication: RHEUMATOID ARTHRITIS
     Dates: start: 201107
  4. PREDNISOLONE [Concomitant]
     Indication: RHEUMATOID ARTHRITIS
     Dates: end: 20120101

REACTIONS (5)
  - Lymphadenopathy [Not Recovered/Not Resolved]
  - Unevaluable event [Unknown]
  - Neoplasm malignant [Not Recovered/Not Resolved]
  - Malignant neoplasm of unknown primary site [Unknown]
  - Diverticulitis [Unknown]
